FAERS Safety Report 6335935-6 (Version None)
Quarter: 2009Q3

REPORT INFORMATION
  Report Type: 
  Country: None (occurrence: None)
  Receive Date: 20090901
  Receipt Date: 20090825
  Transmission Date: 20100115
  Serious: Yes (Death)
  Sender: FDA-Public Use
  Company Number: IT-CELGENEUS-083-21880-09081753

PATIENT
  Sex: Female

DRUGS (3)
  1. REVLIMID [Suspect]
     Indication: MULTIPLE MYELOMA
     Route: 048
     Dates: start: 20080812, end: 20090614
  2. SOLDESAM [Concomitant]
     Indication: MULTIPLE MYELOMA
     Route: 048
     Dates: start: 20080812, end: 20090614
  3. CELLCEPT [Concomitant]
     Indication: BONE MARROW TRANSPLANT
     Route: 048

REACTIONS (2)
  - ACUTE RESPIRATORY DISTRESS SYNDROME [None]
  - RESPIRATORY FAILURE [None]
